FAERS Safety Report 23946477 (Version 1)
Quarter: 2024Q2

REPORT INFORMATION
  Report Type: Spontaneous
  Country: US (occurrence: US)
  Receive Date: 20240606
  Receipt Date: 20240606
  Transmission Date: 20240716
  Serious: No
  Sender: FDA-Public Use
  Company Number: US-MYLANLABS-2024M1047233

PATIENT
  Sex: Female

DRUGS (1)
  1. RYZUMVI [Suspect]
     Active Substance: PHENTOLAMINE MESYLATE
     Indication: Mydriasis
     Dosage: 2 GTT DROPS (IN SAME EYE)
     Route: 047

REACTIONS (1)
  - Miosis [Not Recovered/Not Resolved]
